FAERS Safety Report 6114786-1 (Version None)
Quarter: 2009Q1

REPORT INFORMATION
  Report Type: 
  Country: None (occurrence: None)
  Receive Date: 20090313
  Receipt Date: 20090309
  Transmission Date: 20090719
  Serious: Yes (Death, Hospitalization, Other)
  Sender: FDA-Public Use
  Company Number: DK-BAYER-200829967GPV

PATIENT
  Age: 74 Year
  Sex: Female
  Weight: 60 kg

DRUGS (5)
  1. NEXAVAR [Suspect]
     Indication: RENAL CANCER
     Route: 048
     Dates: start: 20080930, end: 20081014
  2. NEXAVAR [Suspect]
     Route: 048
     Dates: start: 20080924, end: 20080929
  3. CIPRAMIL [Suspect]
     Indication: DEPRESSION
     Dosage: TOTAL DAILY DOSE: 10 MG
     Route: 048
     Dates: start: 20081010, end: 20081014
  4. COZAAR [Concomitant]
     Indication: DRUG USE FOR UNKNOWN INDICATION
     Route: 048
  5. ALLOPURINOL [Concomitant]
     Indication: DRUG USE FOR UNKNOWN INDICATION
     Dosage: TOTAL DAILY DOSE: 100 MG
     Route: 048

REACTIONS (2)
  - DEATH [None]
  - RENAL FAILURE ACUTE [None]
